FAERS Safety Report 13276977 (Version 1)
Quarter: 2017Q1

REPORT INFORMATION
  Report Type: Spontaneous
  Country: US (occurrence: US)
  Receive Date: 20170227
  Receipt Date: 20170227
  Transmission Date: 20170428
  Serious: Yes (Other)
  Sender: FDA-Public Use
  Company Number: None

PATIENT
  Age: 51 Year
  Sex: Female

DRUGS (9)
  1. OPSUMIT [Suspect]
     Active Substance: MACITENTAN
     Indication: PULMONARY EMBOLISM
     Route: 048
     Dates: start: 201609
  2. METOPROLOL. [Concomitant]
     Active Substance: METOPROLOL
  3. LOPERAMIDE [Concomitant]
     Active Substance: LOPERAMIDE
  4. FUROSEMIDE. [Concomitant]
     Active Substance: FUROSEMIDE
  5. GABAPENTIN. [Concomitant]
     Active Substance: GABAPENTIN
  6. SILDENAFIL. [Concomitant]
     Active Substance: SILDENAFIL
  7. EPOPROSTENOL. [Concomitant]
     Active Substance: EPOPROSTENOL
  8. WARFARIN [Concomitant]
     Active Substance: WARFARIN
  9. ONDANSETRON [Concomitant]
     Active Substance: ONDANSETRON

REACTIONS (1)
  - Neoplasm [None]

NARRATIVE: CASE EVENT DATE: 20170214
